FAERS Safety Report 23080555 (Version 1)
Quarter: 2023Q4

REPORT INFORMATION
  Report Type: Spontaneous
  Country: US (occurrence: None)
  Receive Date: 20231018
  Receipt Date: 20231018
  Transmission Date: 20240110
  Serious: No
  Sender: FDA-Public Use
  Company Number: 2023A221717

PATIENT

DRUGS (2)
  1. CRESTOR [Suspect]
     Active Substance: ROSUVASTATIN CALCIUM
     Route: 048
  2. INLYTA [Suspect]
     Active Substance: AXITINIB
     Route: 048
     Dates: start: 20201230

REACTIONS (12)
  - Myalgia [Unknown]
  - Myositis [Unknown]
  - Fatigue [Unknown]
  - Diarrhoea [Unknown]
  - Nausea [Unknown]
  - Vomiting [Unknown]
  - Painful erection [Unknown]
  - Urticaria [Unknown]
  - Rash [Unknown]
  - Liver function test increased [Unknown]
  - Tremor [Unknown]
  - Drug hypersensitivity [Unknown]
